FAERS Safety Report 4818458-2 (Version None)
Quarter: 2005Q4

REPORT INFORMATION
  Report Type: 
  Country: None (occurrence: None)
  Receive Date: 20051102
  Receipt Date: 20050810
  Transmission Date: 20060501
  Serious: Yes (Hospitalization)
  Sender: FDA-Public Use
  Company Number: GRWYE897711AUG05

PATIENT
  Age: 65 Year
  Sex: Female

DRUGS (1)
  1. ENBREL [Suspect]
     Indication: RHEUMATOID ARTHRITIS
     Route: 058
     Dates: start: 20050101, end: 20050701

REACTIONS (5)
  - ALOPECIA [None]
  - CHOLECYSTECTOMY [None]
  - PANCREATITIS [None]
  - POST PROCEDURAL COMPLICATION [None]
  - STRESS [None]
